FAERS Safety Report 8383469-X (Version None)
Quarter: 2012Q2

REPORT INFORMATION
  Report Type: 
  Country: None (occurrence: None)
  Receive Date: 20120524
  Receipt Date: 20120521
  Transmission Date: 20120825
  Serious: Yes (Other)
  Sender: FDA-Public Use
  Company Number: PHHY2012GB043132

PATIENT
  Age: 68 Year
  Sex: Female

DRUGS (5)
  1. LISINOPRIL [Suspect]
     Indication: HYPERTENSION
     Dosage: 20 MG, QD
     Route: 048
     Dates: start: 20120424, end: 20120427
  2. ALBUTEROL [Concomitant]
     Indication: ASTHMA
     Dosage: 2 DF, PRN
     Dates: start: 20110420
  3. FLUTICASONE PROPIONATE/SALMETEROL [Concomitant]
     Indication: ASTHMA
     Dosage: 2 DF, BID
     Dates: start: 20110822
  4. PREMARIN [Concomitant]
     Dosage: 625 UG, UNK
     Dates: start: 20110119
  5. CANDESARTAN CILEXETIL [Concomitant]
     Dosage: 16 MG, QD
     Dates: start: 20101118

REACTIONS (4)
  - FEELING HOT [None]
  - HYPERTENSION [None]
  - ABDOMINAL PAIN UPPER [None]
  - DISCOMFORT [None]
